FAERS Safety Report 23332983 (Version 1)
Quarter: 2023Q4

REPORT INFORMATION
  Report Type: Spontaneous
  Country: FR (occurrence: FR)
  Receive Date: 20231222
  Receipt Date: 20231222
  Transmission Date: 20240110
  Serious: Yes (Hospitalization)
  Sender: FDA-Public Use
  Company Number: FR-AFSSAPS-PB2023001049

PATIENT
  Age: 88 Year
  Sex: Female
  Weight: 100 kg

DRUGS (1)
  1. ZOLPIDEM [Suspect]
     Active Substance: ZOLPIDEM TARTRATE
     Indication: Product used for unknown indication
     Dosage: A BOX
     Route: 048
     Dates: start: 20230813

REACTIONS (2)
  - Poisoning deliberate [Unknown]
  - Somnolence [Unknown]

NARRATIVE: CASE EVENT DATE: 20230813
